FAERS Safety Report 19948376 (Version 1)
Quarter: 2021Q4

REPORT INFORMATION
  Report Type: Spontaneous
  Country: US (occurrence: US)
  Receive Date: 20211012
  Receipt Date: 20211012
  Transmission Date: 20220303
  Serious: No
  Sender: FDA-Public Use
  Company Number: US-BAUSCH-BL-2021-033850

PATIENT
  Sex: Female

DRUGS (1)
  1. PROLENSA [Suspect]
     Active Substance: BROMFENAC SODIUM
     Indication: Postoperative care
     Route: 047
     Dates: start: 202102, end: 2021

REACTIONS (2)
  - Halo vision [Not Recovered/Not Resolved]
  - Night blindness [Not Recovered/Not Resolved]

NARRATIVE: CASE EVENT DATE: 20210101
